FAERS Safety Report 5761939-8 (Version None)
Quarter: 2008Q2

REPORT INFORMATION
  Report Type: 
  Country: None (occurrence: None)
  Receive Date: 20080603
  Receipt Date: 20080521
  Transmission Date: 20081010
  Serious: Yes (Hospitalization)
  Sender: FDA-Public Use
  Company Number: US023600

PATIENT
  Age: 43 Year
  Sex: Male

DRUGS (2)
  1. MODAFINIL [Suspect]
     Indication: SOMNOLENCE
     Dosage: 100 MG ORAL
     Route: 048
  2. KRATOM [Suspect]
     Indication: DRUG WITHDRAWAL SYNDROME

REACTIONS (5)
  - DRUG WITHDRAWAL SYNDROME [None]
  - GRAND MAL CONVULSION [None]
  - HEART RATE INCREASED [None]
  - MIOSIS [None]
  - SOMNOLENCE [None]
